FAERS Safety Report 5197433-5 (Version None)
Quarter: 2006Q4

REPORT INFORMATION
  Report Type: 
  Country: None (occurrence: None)
  Receive Date: 20060927
  Receipt Date: 20060503
  Transmission Date: 20070319
  Serious: No
  Sender: FDA-Public Use
  Company Number: US-CVT-060944

PATIENT
  Age: 53 Year
  Sex: Female
  Weight: 51.7 kg

DRUGS (2)
  1. RANEXA [Suspect]
     Indication: ANGINA PECTORIS
     Dosage: 500 MG, BID, ORAL
     Route: 048
  2. METHADONE /00068901/(METHADONE) [Suspect]
     Dosage: 90 MG, QD, ORAL
     Route: 048

REACTIONS (1)
  - BLOOD GLUCOSE DECREASED [None]
